FAERS Safety Report 4887680-1 (Version None)
Quarter: 2006Q1

REPORT INFORMATION
  Report Type: 
  Country: None (occurrence: None)
  Receive Date: 20060119
  Receipt Date: 20060119
  Transmission Date: 20060701
  Serious: Yes (Life-Threatening, Hospitalization)
  Sender: FDA-Public Use
  Company Number: None

PATIENT
  Age: 23 Year
  Sex: Female
  Weight: 62.6 kg

DRUGS (4)
  1. KETAMINE HCL [Suspect]
     Indication: ANAESTHESIA
     Dosage: 20 MG ONCE IV
     Route: 042
     Dates: start: 20060110
  2. FENTANYL [Suspect]
     Indication: ANAESTHESIA
     Dosage: 100 MCG ONCE IV
     Route: 042
     Dates: start: 20060110
  3. FENTANYL [Suspect]
     Indication: PAIN
     Dosage: 100 MCG ONCE IV
     Route: 042
     Dates: start: 20060110
  4. EFFEXOR XR [Concomitant]

REACTIONS (4)
  - CHEST PAIN [None]
  - POST PROCEDURAL COMPLICATION [None]
  - TACHYPNOEA [None]
  - TONIC CLONIC MOVEMENTS [None]
